FAERS Safety Report 19229448 (Version 2)
Quarter: 2021Q2

REPORT INFORMATION
  Report Type: Report from Study
  Country: CA (occurrence: CA)
  Receive Date: 20210506
  Receipt Date: 20210521
  Transmission Date: 20210717
  Serious: Yes (Death)
  Sender: FDA-Public Use
  Company Number: CA-HLS-202107429

PATIENT
  Age: 62 Year
  Sex: Female

DRUGS (3)
  1. CLOZARIL [Suspect]
     Active Substance: CLOZAPINE
     Indication: SCHIZOAFFECTIVE DISORDER
     Route: 048
     Dates: start: 20210416
  2. CLOZARIL [Suspect]
     Active Substance: CLOZAPINE
     Indication: SCHIZOAFFECTIVE DISORDER
     Dosage: 50 MG
     Route: 048
     Dates: start: 20210412, end: 20210424
  3. ASENAPINE. [Concomitant]
     Active Substance: ASENAPINE
     Indication: SCHIZOAFFECTIVE DISORDER
     Dosage: TWICE DAILY
     Route: 048
     Dates: start: 202102, end: 20210424

REACTIONS (1)
  - Pulmonary embolism [Fatal]

NARRATIVE: CASE EVENT DATE: 20210424
